FAERS Safety Report 24918033 (Version 3)
Quarter: 2025Q1

REPORT INFORMATION
  Report Type: Report from Study
  Country: JP (occurrence: JP)
  Receive Date: 20250203
  Receipt Date: 20250318
  Transmission Date: 20250409
  Serious: Yes (Death)
  Sender: ALNYLAM PHARMACEUTICALS
  Company Number: JP-ALNYLAM PHARMACEUTICALS, INC.-ALN-2025-000740

PATIENT

DRUGS (8)
  1. AMVUTTRA [Suspect]
     Active Substance: VUTRISIRAN
     Indication: Hereditary neuropathic amyloidosis
     Route: 058
     Dates: start: 20230612, end: 20241211
  2. VITAMINS [Concomitant]
     Active Substance: VITAMINS
     Indication: Vitamin supplementation
     Route: 048
     Dates: start: 20230612, end: 20241215
  3. LEVOTHYROXINE [Concomitant]
     Active Substance: LEVOTHYROXINE
     Indication: Goitre
     Route: 048
     Dates: end: 20241215
  4. LIPITOR [Concomitant]
     Active Substance: ATORVASTATIN CALCIUM
     Indication: Dyslipidaemia
     Route: 048
     Dates: end: 20241215
  5. Diart [Concomitant]
     Indication: Cardiac failure chronic
     Route: 048
     Dates: end: 20241215
  6. CARVEDILOL [Concomitant]
     Active Substance: CARVEDILOL
     Indication: Cardiac failure chronic
     Route: 048
     Dates: end: 20241215
  7. SPIRONOLACTONE [Concomitant]
     Active Substance: SPIRONOLACTONE
     Indication: Cardiac failure chronic
     Route: 048
     Dates: start: 20230823, end: 20241215
  8. DAPAGLIFLOZIN [Concomitant]
     Active Substance: DAPAGLIFLOZIN
     Indication: Cardiac failure chronic
     Route: 048
     Dates: start: 20230823, end: 20241215

REACTIONS (1)
  - Death [Fatal]

NARRATIVE: CASE EVENT DATE: 20241215
